FAERS Safety Report 26085437 (Version 1)
Quarter: 2025Q4

REPORT INFORMATION
  Report Type: Spontaneous
  Country: IN (occurrence: IN)
  Receive Date: 20251125
  Receipt Date: 20251125
  Transmission Date: 20260118
  Serious: Yes (Hospitalization, Other)
  Sender: ALKEM
  Company Number: IN-ALKEM LABORATORIES LIMITED-IN-ALKEM-2025-12312

PATIENT
  Age: 18 Year
  Sex: Female

DRUGS (5)
  1. OXCARBAZEPINE [Suspect]
     Active Substance: OXCARBAZEPINE
     Indication: Epilepsy
     Dosage: 300 MILLIGRAM, QD (TABLETS)
     Route: 065
  2. OXCARBAZEPINE [Suspect]
     Active Substance: OXCARBAZEPINE
     Dosage: UNK MORE THAN 1 TABLET AT A TIME
     Route: 065
  3. OXCARBAZEPINE [Suspect]
     Active Substance: OXCARBAZEPINE
     Dosage: UNK GRADUALLY INCREASED TO 2 TO 3 TIMES PER MONTH
     Route: 065
  4. OXCARBAZEPINE [Suspect]
     Active Substance: OXCARBAZEPINE
     Dosage: UNK 2 TABLETS WITH THE INTENTION
     Route: 065
  5. OXCARBAZEPINE [Suspect]
     Active Substance: OXCARBAZEPINE
     Dosage: UNK INGESTION OF 4 TABLETS
     Route: 048

REACTIONS (7)
  - Throat irritation [Unknown]
  - Dizziness [Unknown]
  - Intentional product misuse [Unknown]
  - Overdose [Unknown]
  - Nausea [Unknown]
  - Drug abuse [Unknown]
  - Drug dependence [Unknown]
